FAERS Safety Report 8785832 (Version 1)
Quarter: 2012Q4

REPORT INFORMATION
  Report Type: 
  Country: AR (occurrence: AR)
  Receive Date: 20120914
  Receipt Date: 20120914
  Transmission Date: 20130627
  Serious: Yes (Hospitalization, Other)
  Sender: FDA-Public Use
  Company Number: PHHY2012AR079734

PATIENT
  Age: 70 None
  Sex: Female

DRUGS (1)
  1. EXELON PATCH [Suspect]
     Indication: MENTAL IMPAIRMENT
     Route: 062

REACTIONS (4)
  - Dehydration [Recovering/Resolving]
  - Bronchitis [Recovering/Resolving]
  - Application site erythema [Recovering/Resolving]
  - Application site pruritus [Recovering/Resolving]
